FAERS Safety Report 6091629-6 (Version None)
Quarter: 2009Q1

REPORT INFORMATION
  Report Type: 
  Country: None (occurrence: None)
  Receive Date: 20090225
  Receipt Date: 20080310
  Transmission Date: 20090719
  Serious: No
  Sender: FDA-Public Use
  Company Number: A0714316A

PATIENT
  Age: 64 Year
  Sex: Female

DRUGS (4)
  1. VALTREX [Suspect]
     Indication: GENITAL HERPES
     Dosage: 500MG PER DAY
     Route: 048
  2. POTASSIUM CHLORIDE [Concomitant]
  3. LEVOTHYROXINE SODIUM [Concomitant]
  4. ASPIRIN [Concomitant]

REACTIONS (1)
  - ARRHYTHMIA [None]
